FAERS Safety Report 10365166 (Version 1)
Quarter: 2014Q3

REPORT INFORMATION
  Report Type: Spontaneous
  Country: US (occurrence: None)
  Receive Date: 20140804
  Receipt Date: 20140804
  Transmission Date: 20150326
  Serious: No
  Sender: FDA-Public Use
  Company Number: None

PATIENT
  Age: 66 Year
  Sex: Female
  Weight: 60.78 kg

DRUGS (1)
  1. TECFIDERA [Suspect]
     Active Substance: DIMETHYL FUMARATE
     Indication: MULTIPLE SCLEROSIS
     Dosage: TWICE DAILY TAKEN BY MOUTH
     Route: 048
     Dates: start: 20140701, end: 20140801

REACTIONS (8)
  - Dizziness [None]
  - Abdominal pain upper [None]
  - Rib fracture [None]
  - Soft tissue disorder [None]
  - Swelling [None]
  - Blood pressure decreased [None]
  - Musculoskeletal chest pain [None]
  - Dysphagia [None]

NARRATIVE: CASE EVENT DATE: 20140720
